FAERS Safety Report 13842877 (Version 2)
Quarter: 2017Q4

REPORT INFORMATION
  Report Type: Spontaneous
  Country: US (occurrence: US)
  Receive Date: 20170808
  Receipt Date: 20171026
  Transmission Date: 20180320
  Serious: No
  Sender: FDA-Public Use
  Company Number: US-GALDERMA-US17005310

PATIENT
  Age: 24 Year
  Sex: Female

DRUGS (3)
  1. EPIDUO FORTE [Suspect]
     Active Substance: ADAPALENE\BENZOYL PEROXIDE
     Indication: ACNE
     Dosage: 0.3% / 2.5%
     Route: 061
     Dates: start: 20170614, end: 20170614
  2. FLUOCINONIDE .05% [Concomitant]
     Indication: ECZEMA
     Dosage: 0.05%
  3. EPIDUO FORTE [Suspect]
     Active Substance: ADAPALENE\BENZOYL PEROXIDE
     Dosage: 0.3% / 2.5%
     Route: 061
     Dates: start: 20170707, end: 20170707

REACTIONS (12)
  - Pruritus [Recovered/Resolved]
  - Dry eye [Recovered/Resolved]
  - Dermatitis allergic [Recovered/Resolved]
  - Erythema [Recovered/Resolved]
  - Swelling face [Recovered/Resolved]
  - Dermatitis [Recovered/Resolved]
  - Blepharitis [Recovered/Resolved]
  - Skin exfoliation [Recovered/Resolved]
  - Dry skin [Recovered/Resolved]
  - Skin irritation [Recovered/Resolved]
  - Rash [Recovered/Resolved]
  - Eye inflammation [Recovered/Resolved]

NARRATIVE: CASE EVENT DATE: 2017
